FAERS Safety Report 17433407 (Version 1)
Quarter: 2020Q1

REPORT INFORMATION
  Report Type: Spontaneous
  Country: US (occurrence: US)
  Receive Date: 20200219
  Receipt Date: 20200219
  Transmission Date: 20200409
  Serious: Yes (Other)
  Sender: FDA-Public Use
  Company Number: US-VERICEL-US-VCEL-20-000905

PATIENT
  Age: 39 Year
  Sex: Female

DRUGS (1)
  1. MACI [Suspect]
     Active Substance: AUTOLOGOUS CULTURED CHONDROCYTES\SUS SCROFA COLLAGEN
     Indication: CARTILAGE INJURY
     Dosage: 1 DOSAGE FORM, SINGLE
     Route: 050
     Dates: start: 20190930

REACTIONS (3)
  - Joint lock [Not Recovered/Not Resolved]
  - Crepitations [Not Recovered/Not Resolved]
  - Graft overgrowth [Not Recovered/Not Resolved]

NARRATIVE: CASE EVENT DATE: 20200205
